FAERS Safety Report 10768748 (Version 1)
Quarter: 2015Q1

REPORT INFORMATION
  Report Type: Spontaneous
  Country: US (occurrence: US)
  Receive Date: 20150206
  Receipt Date: 20150206
  Transmission Date: 20150721
  Serious: No
  Sender: FDA-Public Use
  Company Number: US-PFIZER INC-2015045472

PATIENT
  Sex: Male

DRUGS (11)
  1. TAMBOCOR [Suspect]
     Active Substance: FLECAINIDE ACETATE
  2. ERYTHROMYCIN. [Suspect]
     Active Substance: ERYTHROMYCIN
  3. NORVASC [Suspect]
     Active Substance: AMLODIPINE BESYLATE
     Dosage: UNK
  4. CARDIZEM [Suspect]
     Active Substance: DILTIAZEM HYDROCHLORIDE
     Dosage: UNK
  5. BETAPACE [Suspect]
     Active Substance: SOTALOL HYDROCHLORIDE
  6. ACEON [Suspect]
     Active Substance: PERINDOPRIL ERBUMINE
  7. INDERAL [Suspect]
     Active Substance: PROPRANOLOL HYDROCHLORIDE
     Dosage: UNK
  8. QUINAGLUTE [Suspect]
     Active Substance: QUINIDINE GLUCONATE
  9. QUINIDINE [Suspect]
     Active Substance: QUINIDINE
  10. RYTHMOL [Suspect]
     Active Substance: PROPAFENONE HYDROCHLORIDE
  11. CALAN [Suspect]
     Active Substance: VERAPAMIL HYDROCHLORIDE
     Dosage: UNK

REACTIONS (1)
  - Drug hypersensitivity [Unknown]
